FAERS Safety Report 25306123 (Version 2)
Quarter: 2025Q4

REPORT INFORMATION
  Report Type: Report from Study
  Country: US (occurrence: None)
  Receive Date: 20250513
  Receipt Date: 20251114
  Transmission Date: 20260118
  Serious: Yes (Other)
  Sender: UCB
  Company Number: US-UCBSA-2025027352

PATIENT
  Age: 11 Year
  Weight: 56 kg

DRUGS (2)
  1. FENFLURAMINE [Suspect]
     Active Substance: FENFLURAMINE
     Indication: Product used for unknown indication
     Dosage: 0.35 MILLIGRAM PER KILOGRAM PER DAY (TOTAL DOSE OF 19.8 MILLIGRAM PER DAY)
  2. FENFLURAMINE [Suspect]
     Active Substance: FENFLURAMINE
     Dosage: 4.5 MILLILITER, 2X/DAY (BID)

REACTIONS (2)
  - Ventricular septal defect [Unknown]
  - Mitral valve dysplasia [Unknown]
